FAERS Safety Report 8745705 (Version 5)
Quarter: 2014Q3

REPORT INFORMATION
  Report Type: Report from Study
  Country: JP (occurrence: JP)
  Receive Date: 20120827
  Receipt Date: 20140908
  Transmission Date: 20150326
  Serious: Yes (Life-Threatening, Hospitalization, Disabling, Other)
  Sender: FDA-Public Use
  Company Number: JP-009507513-1201USA01379

PATIENT
  Age: 68 Year
  Sex: Male

DRUGS (13)
  1. ZOLINZA [Suspect]
     Active Substance: VORINOSTAT
     Dosage: 300 MG, QD
     Route: 048
     Dates: start: 20111214, end: 20120309
  2. ZOLINZA [Suspect]
     Active Substance: VORINOSTAT
     Dosage: 300 MG, TAKE FOR 5 DAYS AND STOP FOR 2 DAYS
     Route: 048
     Dates: start: 20120415, end: 20120511
  3. LOXOPROFEN [Concomitant]
     Active Substance: LOXOPROFEN
     Indication: PAIN IN EXTREMITY
     Dosage: 60 MG, TID
     Route: 048
     Dates: start: 20081104, end: 20120329
  4. LYRICA [Concomitant]
     Active Substance: PREGABALIN
     Dosage: 25 MG, QD
     Route: 048
     Dates: start: 20120513
  5. ZOLINZA [Suspect]
     Active Substance: VORINOSTAT
     Dosage: 300 MG, TAKE FOR 5 DAYS AND STOP FOR 2 DAYS
     Route: 048
     Dates: start: 20120521, end: 20120607
  6. LYRICA [Concomitant]
     Active Substance: PREGABALIN
     Indication: HYPOAESTHESIA
     Dosage: 75 MG, QD
     Route: 048
     Dates: start: 20110215, end: 20120512
  7. TAKEPRON [Concomitant]
     Active Substance: LANSOPRAZOLE
     Indication: PROPHYLAXIS
     Dosage: 15 MG, QD
     Route: 048
     Dates: start: 20110314
  8. ZOLINZA [Suspect]
     Active Substance: VORINOSTAT
     Dosage: 300 MG, TAKE FOR 5 DAYS AND STOP FOR 2 DAYS
     Route: 048
     Dates: start: 20120629
  9. HERBAL NOS [Concomitant]
     Active Substance: HERBALS
     Indication: MUSCLE SPASMS
     Dosage: 1 DF, QD, FORMULATION POR
     Route: 048
     Dates: start: 20091210, end: 20120614
  10. ZOLINZA [Suspect]
     Active Substance: VORINOSTAT
     Indication: ANAPLASTIC LARGE CELL LYMPHOMA T- AND NULL-CELL TYPES
     Dosage: 400 MG, QD
     Route: 048
     Dates: start: 20111121, end: 20111205
  11. MUCOSTA [Concomitant]
     Active Substance: REBAMIPIDE
     Indication: PROPHYLAXIS
     Dosage: 100 MG, TID
     Route: 048
     Dates: start: 20081104, end: 20120329
  12. ZOLINZA [Suspect]
     Active Substance: VORINOSTAT
     Dosage: 300 MG, TAKE FOR 5 DAYS AND STOP FOR 2 DAYS
     Route: 048
     Dates: start: 20120319, end: 20120406
  13. METHYCOBAL [Concomitant]
     Active Substance: METHYLCOBALAMIN
     Indication: HYPOAESTHESIA
     Dosage: 500 MICROGRAM, TID
     Route: 048
     Dates: start: 20090317

REACTIONS (12)
  - Weight decreased [Not Recovered/Not Resolved]
  - Malaise [Recovered/Resolved]
  - Dermatitis acneiform [Recovering/Resolving]
  - Renal failure acute [Recovering/Resolving]
  - Platelet count decreased [Recovering/Resolving]
  - Blood creatinine increased [Recovered/Resolved]
  - Decreased appetite [Recovered/Resolved]
  - Decreased appetite [Recovered/Resolved]
  - Platelet count decreased [Recovering/Resolving]
  - Platelet count decreased [Recovered/Resolved]
  - Dysgeusia [Recovering/Resolving]
  - Platelet count decreased [Recovered/Resolved]

NARRATIVE: CASE EVENT DATE: 20111128
